FAERS Safety Report 17046559 (Version 1)
Quarter: 2019Q4

REPORT INFORMATION
  Report Type: Spontaneous
  Country: GB (occurrence: GB)
  Receive Date: 20191119
  Receipt Date: 20191119
  Transmission Date: 20200122
  Serious: Yes (Life-Threatening, Hospitalization, Other)
  Sender: FDA-Public Use
  Company Number: GB-TEVA-2019-GB-1138397

PATIENT
  Age: 56 Year
  Sex: Male

DRUGS (3)
  1. MEPOLIZUMAB [Suspect]
     Active Substance: MEPOLIZUMAB
     Route: 058
  2. MEPOLIZUMAB [Suspect]
     Active Substance: MEPOLIZUMAB
     Route: 058
  3. PREGABALIN. [Suspect]
     Active Substance: PREGABALIN
     Route: 065

REACTIONS (5)
  - Pneumonitis [Recovered/Resolved with Sequelae]
  - Drug reaction with eosinophilia and systemic symptoms [Recovered/Resolved with Sequelae]
  - Respiratory failure [Recovered/Resolved with Sequelae]
  - Off label use [Unknown]
  - Hypereosinophilic syndrome [Recovering/Resolving]

NARRATIVE: CASE EVENT DATE: 201706
